FAERS Safety Report 5788386-7 (Version None)
Quarter: 2008Q2

REPORT INFORMATION
  Report Type: 
  Country: None (occurrence: None)
  Receive Date: 20080625
  Receipt Date: 20080613
  Transmission Date: 20081010
  Serious: Yes (Other)
  Sender: FDA-Public Use
  Company Number: US-PFIZER INC-2008051269

PATIENT
  Sex: Male
  Weight: 61.363 kg

DRUGS (4)
  1. CHANTIX [Suspect]
     Indication: SMOKING CESSATION THERAPY
  2. ALL OTHER THERAPEUTIC PRODUCTS [Concomitant]
  3. LIPITOR [Concomitant]
  4. ATIVAN [Concomitant]

REACTIONS (1)
  - HALLUCINATION, AUDITORY [None]
